FAERS Safety Report 14484614 (Version 1)
Quarter: 2018Q1

REPORT INFORMATION
  Report Type: Report from Study
  Country: None (occurrence: US)
  Receive Date: 20180205
  Receipt Date: 20180205
  Transmission Date: 20180509
  Serious: Yes (Other)
  Sender: FDA-Public Use
  Company Number: US-ABBVIE-18K-163-2223063-00

PATIENT
  Age: 69 Year
  Sex: Female

DRUGS (2)
  1. HUMIRA [Suspect]
     Active Substance: ADALIMUMAB
     Route: 058
     Dates: start: 20180125
  2. HUMIRA [Suspect]
     Active Substance: ADALIMUMAB
     Indication: RHEUMATOID ARTHRITIS
     Route: 058
     Dates: start: 20171114, end: 201712

REACTIONS (9)
  - Gait disturbance [Unknown]
  - Loss of personal independence in daily activities [Unknown]
  - Carpal tunnel syndrome [Unknown]
  - Nasopharyngitis [Unknown]
  - Joint swelling [Unknown]
  - Hyperhidrosis [Unknown]
  - Joint stiffness [Unknown]
  - Arthralgia [Unknown]
  - Injection site pruritus [Recovered/Resolved]

NARRATIVE: CASE EVENT DATE: 2017
